FAERS Safety Report 26144820 (Version 1)
Quarter: 2025Q4

REPORT INFORMATION
  Report Type: Spontaneous
  Country: US (occurrence: US)
  Receive Date: 20251211
  Receipt Date: 20251211
  Transmission Date: 20260117
  Serious: No
  Sender: ALCON
  Company Number: US-ALCON LABORATORIES-ALC2025US004724

PATIENT
  Sex: Female

DRUGS (1)
  1. ACOLTREMON [Suspect]
     Active Substance: ACOLTREMON
     Indication: Product used for unknown indication
     Dosage: 1 DROP EACH EYE TWICE A DAY
     Route: 047
     Dates: start: 20250816

REACTIONS (5)
  - Vision blurred [Recovered/Resolved]
  - Ocular hyperaemia [Recovered/Resolved]
  - Drug ineffective [Unknown]
  - Eye irritation [Recovered/Resolved]
  - Eye pain [Recovered/Resolved]
